FAERS Safety Report 23580915 (Version 4)
Quarter: 2024Q1

REPORT INFORMATION
  Report Type: Spontaneous
  Country: US (occurrence: US)
  Receive Date: 20240229
  Receipt Date: 20240313
  Transmission Date: 20240409
  Serious: No
  Sender: FDA-Public Use
  Company Number: US-BIOGEN-2024BI01248961

PATIENT
  Sex: Female

DRUGS (11)
  1. AVONEX PEN [Suspect]
     Active Substance: INTERFERON BETA-1A
     Indication: Multiple sclerosis
     Dosage: AVONEX USE X 25 YEARS
     Route: 050
     Dates: start: 20110217
  2. AVONEX PEN [Suspect]
     Active Substance: INTERFERON BETA-1A
  3. AVONEX PEN [Suspect]
     Active Substance: INTERFERON BETA-1A
  4. AVONEX PEN [Suspect]
     Active Substance: INTERFERON BETA-1A
  5. RESTORIL [Concomitant]
     Active Substance: TEMAZEPAM
     Route: 050
  6. VITAMIN D3 [Concomitant]
     Active Substance: CHOLECALCIFEROL
     Route: 050
  7. VENLAFAXINE HCL [Concomitant]
     Active Substance: VENLAFAXINE HYDROCHLORIDE
     Route: 050
  8. NAPROSYN [Concomitant]
     Active Substance: NAPROXEN
     Route: 050
  9. LATANOPROST [Concomitant]
     Active Substance: LATANOPROST
     Route: 050
  10. CRANBERRY [Concomitant]
     Active Substance: CRANBERRY
     Route: 050
  11. ASPIRIN [Concomitant]
     Active Substance: ASPIRIN
     Route: 050

REACTIONS (4)
  - Confusional state [Unknown]
  - Wound infection [Unknown]
  - Skin laceration [Unknown]
  - Foot deformity [Recovered/Resolved]
